FAERS Safety Report 5424737-0 (Version None)
Quarter: 2007Q3

REPORT INFORMATION
  Report Type: 
  Country: None (occurrence: None)
  Receive Date: 20070725
  Receipt Date: 20070426
  Transmission Date: 20080115
  Serious: Yes (Other)
  Sender: FDA-Public Use
  Company Number: US-JNJFOC-20070406030

PATIENT
  Age: 60 Year
  Sex: Male
  Weight: 99.7913 kg

DRUGS (2)
  1. IMODIUM ADVANCED [Suspect]
     Indication: DIARRHOEA
     Dosage: 2 DOSE(S), 1 IN 1 TOTAL
     Dates: start: 20070424, end: 20070424
  2. UNSPECIFIED MEDICATIONS (ALL OTHER THERAPEUTIC PRODUCTS) [Concomitant]

REACTIONS (2)
  - ABDOMINAL DISTENSION [None]
  - ABDOMINAL PAIN [None]
